FAERS Safety Report 6448159-9 (Version None)
Quarter: 2009Q4

REPORT INFORMATION
  Report Type: 
  Country: None (occurrence: None)
  Receive Date: 20091120
  Receipt Date: 20091113
  Transmission Date: 20100525
  Serious: Yes (Other)
  Sender: FDA-Public Use
  Company Number: US-ASTRAZENECA-2009UW13482

PATIENT
  Age: 28 Year
  Sex: Female
  Weight: 72.6 kg

DRUGS (5)
  1. SEROQUEL [Suspect]
     Indication: BIPOLAR DISORDER
     Route: 048
     Dates: start: 20020101, end: 20080701
  2. CONCERTA [Concomitant]
  3. WELLBUTRIN [Concomitant]
  4. CELEXA [Concomitant]
  5. CYMBALTA [Concomitant]

REACTIONS (3)
  - CARDIOMEGALY [None]
  - HYPERGLYCAEMIA [None]
  - PULMONARY HYPERTENSION [None]
